FAERS Safety Report 20570617 (Version 7)
Quarter: 2024Q3

REPORT INFORMATION
  Report Type: Spontaneous
  Country: US (occurrence: US)
  Receive Date: 20220309
  Receipt Date: 20240923
  Transmission Date: 20241017
  Serious: Yes (Disabling, Other)
  Sender: ORGANON
  Company Number: US-ORGANON-O2203USA000766

PATIENT
  Sex: Female
  Weight: 99.773 kg

DRUGS (8)
  1. SINGULAIR [Suspect]
     Active Substance: MONTELUKAST SODIUM
     Indication: Dyspnoea
     Dosage: UNK
     Route: 048
     Dates: start: 2010, end: 2018
  2. SINGULAIR [Suspect]
     Active Substance: MONTELUKAST SODIUM
     Indication: Upper respiratory tract infection
     Dosage: UNK
     Route: 048
     Dates: start: 201104, end: 2018
  3. SINGULAIR [Suspect]
     Active Substance: MONTELUKAST SODIUM
     Dosage: 1 DOSAGE FORM, QD IN EVENING
     Route: 048
  4. ADVAIR HFA [Concomitant]
     Active Substance: FLUTICASONE PROPIONATE\SALMETEROL XINAFOATE
     Dosage: 1 PUFF BID (250-50 MCG) BREATH ACTIVATED
  5. ZANTAC [Concomitant]
     Active Substance: RANITIDINE HYDROCHLORIDE
     Dosage: 1 DOSAGE FORM, QD
     Route: 048
  6. ALLOPURINOL [Concomitant]
     Active Substance: ALLOPURINOL
     Dosage: 1 DOSAGE FORM, BID
     Route: 048
  7. LEVOTHYROXINE SODIUM [Concomitant]
     Active Substance: LEVOTHYROXINE SODIUM
     Dosage: 2 DOSAGE FORM, QD
     Route: 048
  8. CITALOPRAM [Concomitant]
     Active Substance: CITALOPRAM\CITALOPRAM HYDROBROMIDE
     Dosage: UNK

REACTIONS (33)
  - Neuropsychological symptoms [Recovered/Resolved]
  - Major depression [Recovered/Resolved]
  - Intentional self-injury [Recovered/Resolved]
  - Suicide attempt [Recovered/Resolved]
  - Pneumonia [Unknown]
  - Tremor [Recovered/Resolved]
  - Suicidal ideation [Recovered/Resolved]
  - Emotional disorder [Recovered/Resolved]
  - Amnesia [Recovered/Resolved]
  - Dissociation [Recovered/Resolved]
  - Feeling abnormal [Recovered/Resolved]
  - COVID-19 [Unknown]
  - Disturbance in attention [Recovered/Resolved]
  - Nightmare [Recovered/Resolved]
  - Agitation [Recovered/Resolved]
  - Product prescribing issue [Unknown]
  - Product use in unapproved indication [Unknown]
  - Illness [Unknown]
  - Upper respiratory tract infection [Unknown]
  - Paraesthesia [Unknown]
  - Anxiety [Unknown]
  - Constipation [Unknown]
  - Insomnia [Unknown]
  - Depression [Not Recovered/Not Resolved]
  - Depressed mood [Unknown]
  - Feeling abnormal [Unknown]
  - Irritability [Unknown]
  - Asthenia [Unknown]
  - Decreased interest [Unknown]
  - Intervertebral disc degeneration [Unknown]
  - Dizziness [Unknown]
  - Inappropriate affect [Unknown]
  - Chest pain [Unknown]

NARRATIVE: CASE EVENT DATE: 20100101
